FAERS Safety Report 10035936 (Version 2)
Quarter: 2014Q2

REPORT INFORMATION
  Report Type: Spontaneous
  Country: US (occurrence: US)
  Receive Date: 20140325
  Receipt Date: 20140605
  Transmission Date: 20141212
  Serious: Yes (Hospitalization, Other)
  Sender: FDA-Public Use
  Company Number: US-GILEAD-2014-0097723

PATIENT
  Sex: Female

DRUGS (6)
  1. LETAIRIS [Suspect]
     Indication: PULMONARY HYPERTENSION
     Dosage: 10 MG, QD
     Route: 065
     Dates: start: 20111128
  2. LETAIRIS [Suspect]
     Indication: INTERSTITIAL LUNG DISEASE
  3. LETAIRIS [Suspect]
     Indication: PULMONARY FIBROSIS
  4. TYVASO [Concomitant]
  5. IMDUR [Concomitant]
  6. TOPROL [Concomitant]

REACTIONS (9)
  - Pneumonia [Unknown]
  - Orthostatic hypotension [Unknown]
  - Blood glucose decreased [Unknown]
  - Muscular weakness [Unknown]
  - Fluid retention [Unknown]
  - Weight increased [Unknown]
  - Dizziness [Unknown]
  - Dyspnoea [Unknown]
  - Anaemia [Unknown]
